FAERS Safety Report 23828288 (Version 2)
Quarter: 2024Q2

REPORT INFORMATION
  Report Type: Report from Study
  Country: US (occurrence: US)
  Receive Date: 20240508
  Receipt Date: 20240520
  Transmission Date: 20240716
  Serious: Yes (Other)
  Sender: FDA-Public Use
  Company Number: US-ABBVIE-5747350

PATIENT
  Sex: Female

DRUGS (1)
  1. SKYRIZI [Suspect]
     Active Substance: RISANKIZUMAB-RZAA
     Indication: Psoriasis
     Route: 058
     Dates: start: 20240410

REACTIONS (4)
  - Single functional kidney [Unknown]
  - Serum ferritin decreased [Unknown]
  - Spinal operation [Unknown]
  - Renal cancer [Unknown]

NARRATIVE: CASE EVENT DATE: 20240101
